FAERS Safety Report 10455478 (Version 1)
Quarter: 2014Q3

REPORT INFORMATION
  Report Type: Spontaneous
  Country: US (occurrence: None)
  Receive Date: 20140815
  Receipt Date: 20140815
  Transmission Date: 20150326
  Serious: No
  Sender: FDA-Public Use
  Company Number: E2007-01662-SPO-US

PATIENT
  Sex: Female

DRUGS (5)
  1. DILANTIN [Concomitant]
     Active Substance: PHENYTOIN
  2. BANZEL [Suspect]
     Active Substance: RUFINAMIDE
     Indication: CONVULSION
     Route: 048
     Dates: end: 201403
  3. LOCASAMIDE [Concomitant]
  4. KEPPRA [Concomitant]
     Active Substance: LEVETIRACETAM
  5. FYCOMPA [Suspect]
     Active Substance: PERAMPANEL
     Indication: CONVULSION
     Route: 048
     Dates: start: 201403, end: 201403

REACTIONS (4)
  - Sedation [None]
  - Blood pressure decreased [None]
  - Off label use [None]
  - Drug ineffective [None]

NARRATIVE: CASE EVENT DATE: 201403
